FAERS Safety Report 12549820 (Version 1)
Quarter: 2016Q3

REPORT INFORMATION
  Report Type: Spontaneous
  Country: BE (occurrence: BE)
  Receive Date: 20160712
  Receipt Date: 20160712
  Transmission Date: 20161109
  Serious: Yes (Hospitalization, Other)
  Sender: FDA-Public Use
  Company Number: BE-APOTEX-2016AP009687

PATIENT
  Age: 45 Year
  Sex: Female

DRUGS (4)
  1. VENLAFAXIN APOTEX [Suspect]
     Active Substance: VENLAFAXINE HYDROCHLORIDE
     Indication: DEPRESSION
     Dosage: 4200 MG, SINGLE
     Route: 048
  2. ALPRATOP TABLETTEN [Suspect]
     Active Substance: ALPRAZOLAM
     Indication: DEPRESSION
     Dosage: 10 MG, SINGLE
     Route: 048
  3. VENLAFAXIN APOTEX [Suspect]
     Active Substance: VENLAFAXINE HYDROCHLORIDE
     Dosage: UNK
     Route: 048
  4. MIRTAZAPINE. [Concomitant]
     Active Substance: MIRTAZAPINE
     Indication: PRODUCT USED FOR UNKNOWN INDICATION
     Dosage: UNK
     Route: 065

REACTIONS (6)
  - Intentional overdose [Recovered/Resolved]
  - Altered state of consciousness [Recovered/Resolved]
  - Left ventricular dysfunction [Recovered/Resolved]
  - Toxicity to various agents [Recovered/Resolved]
  - Nystagmus [Recovered/Resolved]
  - Somnolence [Recovered/Resolved]
